FAERS Safety Report 5177502-6 (Version None)
Quarter: 2006Q4

REPORT INFORMATION
  Report Type: 
  Country: None (occurrence: None)
  Receive Date: 20061218
  Receipt Date: 20061204
  Transmission Date: 20070319
  Serious: Yes (Hospitalization)
  Sender: FDA-Public Use
  Company Number: FR-ELI_LILLY_AND_COMPANY-FR200612000827

PATIENT
  Age: 61 Year
  Sex: Female

DRUGS (1)
  1. FORTEO [Suspect]
     Indication: OSTEOPOROSIS
     Dosage: 20 UG, DAILY (1/D)
     Route: 058
     Dates: start: 20051028

REACTIONS (9)
  - ANAEMIA [None]
  - CARDIAC ARREST [None]
  - DYSPNOEA [None]
  - HEPATIC PAIN [None]
  - HYPOKALAEMIA [None]
  - INSOMNIA [None]
  - OEDEMA PERIPHERAL [None]
  - VOMITING [None]
  - WEIGHT DECREASED [None]
